FAERS Safety Report 9357109 (Version 1)
Quarter: 2013Q2

REPORT INFORMATION
  Report Type: Spontaneous
  Country: US (occurrence: None)
  Receive Date: 20130617
  Receipt Date: 20130617
  Transmission Date: 20140414
  Serious: Yes (Other)
  Sender: FDA-Public Use
  Company Number: ACO_36644_2013

PATIENT
  Age: 58 Year
  Sex: Female
  Weight: 98.9 kg

DRUGS (20)
  1. AMPYRA (DALFAMPRIDINE) TABLET, 10MG [Suspect]
     Indication: GAIT DISTURBANCE
     Dosage: 1
     Route: 048
     Dates: start: 201004
  2. ACCOLATE (ZAFIRLUKAST) [Concomitant]
  3. ACTONEL (RISEDRONATE SODIUM) [Concomitant]
  4. ADDERALL (AMFETAMINE ASPARTATE, AMFETAMINE SULFATE, DEXAMFETAMINE SACCHARATE, DEXAMFETAMINE SULFATE) [Concomitant]
  5. BECONASE AQ (BECLOMETASONE DIPROPIONATE) [Concomitant]
  6. BUSPIRONE HYDROCHLORIDE (BUSPIRONE HYDROCHLORIDE) [Concomitant]
  7. EFFEXOR XR (VENLAFAXINE HYDROCHLORIDE) (75 MILLIGRAM, CAPSULE) (VENLAFAXINE HYDROCHLORIDE) [Concomitant]
  8. SPIRONOLACTONE (SPIRONOLACTONE) [Concomitant]
  9. TEKTURNA (ALISKIREN FUMARATE) [Concomitant]
  10. TIZANIDINE (TIZANIDINE HYDROCHLORIDE) [Concomitant]
  11. VYTORIN (EZETIMIBE, SIMVASTATIN) [Concomitant]
  12. LORTAB (HYDROCODONE BITARTRATE, PARACETAMOL, PROMETHAZINE HYDROCHLORIDE) [Concomitant]
  13. LYRICA (PREGABALIN) [Concomitant]
  14. NEXIUM (ESOMEPRAZOLE MAGNESIUM) [Concomitant]
  15. PROVIGIL (MODAFINIL) [Concomitant]
  16. TRILEPTAL (OXCARBAZEPINE) [Concomitant]
  17. LEVAQUIN (LEVOFLOXACIN) [Concomitant]
  18. SALICYLIC ACID (SALICYLIC ACID) [Concomitant]
  19. CEPHALEXIN (CEFALEXIN) [Concomitant]
  20. FLUCONAZOLE (FLUCONAZOLE) [Concomitant]

REACTIONS (2)
  - Uterine cancer [None]
  - Rotator cuff syndrome [None]
